FAERS Safety Report 12768444 (Version 1)
Quarter: 2016Q3

REPORT INFORMATION
  Report Type: Spontaneous
  Country: DE (occurrence: DE)
  Receive Date: 20160921
  Receipt Date: 20160921
  Transmission Date: 20161109
  Serious: Yes (Hospitalization)
  Sender: FDA-Public Use
  Company Number: DE-BIOGEN-2016BI00292724

PATIENT
  Age: 44 Year
  Sex: Female

DRUGS (1)
  1. TYSABRI [Suspect]
     Active Substance: NATALIZUMAB
     Indication: MULTIPLE SCLEROSIS
     Route: 042
     Dates: start: 2012

REACTIONS (3)
  - Paralysis [Recovered/Resolved]
  - Pulmonary embolism [Recovered/Resolved]
  - Right ventricular enlargement [Unknown]

NARRATIVE: CASE EVENT DATE: 201609
